FAERS Safety Report 18449435 (Version 1)
Quarter: 2020Q4

REPORT INFORMATION
  Report Type: Spontaneous
  Country: KR (occurrence: US)
  Receive Date: 20201030
  Receipt Date: 20201030
  Transmission Date: 20210114
  Serious: Yes (Other)
  Sender: FDA-Public Use
  Company Number: KR-JNJFOC-20201035261

PATIENT
  Age: 32 Year
  Sex: Male

DRUGS (15)
  1. HEXAMEDINE [Concomitant]
     Dates: start: 20180611, end: 20180611
  2. LIDOCAINE. [Concomitant]
     Active Substance: LIDOCAINE
     Dates: start: 20180611, end: 20180611
  3. AUGMENTIN [Concomitant]
     Active Substance: AMOXICILLIN\CLAVULANATE POTASSIUM
     Dates: start: 20180611, end: 20180615
  4. RENOX [Concomitant]
     Dates: start: 20180611, end: 20180615
  5. COUGH SYRUP                        /06155801/ [Concomitant]
     Dates: start: 20181017, end: 20181026
  6. EMTRICITABINE W/TENOFOVIR ALAFENAMIDE [Suspect]
     Active Substance: EMTRICITABINE\TENOFOVIR ALAFENAMIDE FUMARATE
     Indication: HIV INFECTION
     Dosage: 1 DF(200/10MG QD
     Route: 048
     Dates: start: 20180509, end: 20180529
  7. DOMPIL [Concomitant]
     Dates: start: 20190102, end: 20190108
  8. SOXINASE [Concomitant]
     Dates: start: 20180611, end: 20180615
  9. TACENOL [Concomitant]
     Dates: start: 20180530
  10. ACETYLCYSTEINE. [Concomitant]
     Active Substance: ACETYLCYSTEINE
     Dates: start: 20181017, end: 20181102
  11. NORZYME [Concomitant]
     Dates: start: 20190102, end: 20190115
  12. RILPIVIRINE [Suspect]
     Active Substance: RILPIVIRINE
     Indication: HIV INFECTION
     Route: 065
     Dates: start: 20180509
  13. EMTRICITABINE W/TENOFOVIR ALAFENAMIDE [Suspect]
     Active Substance: EMTRICITABINE\TENOFOVIR ALAFENAMIDE FUMARATE
     Dosage: 1 DF(200/25MG), QD
     Route: 048
     Dates: start: 20180530
  14. ERDOS [Concomitant]
     Active Substance: ERDOSTEINE
     Dates: start: 20190424, end: 20190428
  15. EPINEPHRINE. [Concomitant]
     Active Substance: EPINEPHRINE
     Dates: start: 20180611, end: 20180611

REACTIONS (9)
  - Productive cough [Recovered/Resolved]
  - Abdominal distension [Recovered/Resolved]
  - Headache [Recovered/Resolved]
  - Cough [Recovered/Resolved]
  - Nausea [Recovered/Resolved]
  - Pyrexia [Recovered/Resolved]
  - Toothache [Recovered/Resolved]
  - Swelling [Recovered/Resolved]
  - Dyspepsia [Recovered/Resolved]

NARRATIVE: CASE EVENT DATE: 201805
